FAERS Safety Report 15609324 (Version 1)
Quarter: 2018Q4

REPORT INFORMATION
  Report Type: Spontaneous
  Country: FR (occurrence: FR)
  Receive Date: 20181112
  Receipt Date: 20181112
  Transmission Date: 20190205
  Serious: Yes (Other)
  Sender: FDA-Public Use
  Company Number: FR-MYLANLABS-2018M1073004

PATIENT
  Age: 41 Year
  Sex: Female

DRUGS (2)
  1. COLOFOAM, MOUSSE RECTALE [Suspect]
     Active Substance: HYDROCORTISONE ACETATE
     Indication: COLITIS
     Dosage: NON RENSEIGNEE
     Route: 054
  2. KETOPROFEN. [Suspect]
     Active Substance: KETOPROFEN
     Indication: BACK PAIN
     Dosage: 100 MG, UNK
     Route: 048

REACTIONS (3)
  - Erythema [Recovered/Resolved]
  - Pruritus [Recovered/Resolved]
  - Hypersensitivity [Recovered/Resolved]
